FAERS Safety Report 6529812-5 (Version None)
Quarter: 2010Q1

REPORT INFORMATION
  Report Type: 
  Country: None (occurrence: None)
  Receive Date: 20100107
  Receipt Date: 20091230
  Transmission Date: 20100710
  Serious: Yes (Other)
  Sender: FDA-Public Use
  Company Number: A0837197A

PATIENT
  Age: 40 Year
  Sex: Female
  Weight: 97.8 kg

DRUGS (2)
  1. LAPATINIB [Suspect]
     Indication: BREAST CANCER
     Dosage: 1500MG PER DAY
     Route: 048
     Dates: start: 20091028
  2. PACLITAXEL [Suspect]
     Indication: BREAST CANCER
     Dosage: 80MGM2 WEEKLY
     Route: 042
     Dates: start: 20091028

REACTIONS (4)
  - DYSPNOEA EXERTIONAL [None]
  - HEADACHE [None]
  - PULMONARY EMBOLISM [None]
  - PYREXIA [None]
